FAERS Safety Report 6324372-6 (Version None)
Quarter: 2009Q3

REPORT INFORMATION
  Report Type: 
  Country: None (occurrence: None)
  Receive Date: 20090824
  Receipt Date: 20090515
  Transmission Date: 20100115
  Serious: No
  Sender: FDA-Public Use
  Company Number: US-ABBOTT-09P-163-0573667-00

PATIENT
  Sex: Female

DRUGS (12)
  1. NIASPAN [Suspect]
     Indication: BLOOD TRIGLYCERIDES INCREASED
     Dates: start: 20090504
  2. NIASPAN [Suspect]
     Indication: LOW DENSITY LIPOPROTEIN INCREASED
  3. NIASPAN [Suspect]
     Indication: HIGH DENSITY LIPOPROTEIN DECREASED
  4. ZETIA [Concomitant]
     Indication: DRUG USE FOR UNKNOWN INDICATION
  5. PRAVACHOL [Concomitant]
     Indication: DRUG USE FOR UNKNOWN INDICATION
  6. LOVAZA [Concomitant]
     Indication: DRUG USE FOR UNKNOWN INDICATION
  7. NORVASC [Concomitant]
     Indication: DRUG USE FOR UNKNOWN INDICATION
  8. INDERAL [Concomitant]
     Indication: DRUG USE FOR UNKNOWN INDICATION
  9. ACEON [Concomitant]
     Indication: DRUG USE FOR UNKNOWN INDICATION
  10. FOSAMAX [Concomitant]
     Indication: DRUG USE FOR UNKNOWN INDICATION
  11. CALCIUM [Concomitant]
     Indication: DRUG USE FOR UNKNOWN INDICATION
  12. MULTI-VITAMIN [Concomitant]
     Indication: DRUG USE FOR UNKNOWN INDICATION

REACTIONS (4)
  - CONSTIPATION [None]
  - FATIGUE [None]
  - FEELING ABNORMAL [None]
  - HEADACHE [None]
